FAERS Safety Report 12653546 (Version 2)
Quarter: 2016Q4

REPORT INFORMATION
  Report Type: Spontaneous
  Country: US (occurrence: US)
  Receive Date: 20160815
  Receipt Date: 20161014
  Transmission Date: 20170207
  Serious: No
  Sender: FDA-Public Use
  Company Number: US-009507513-1607USA012951

PATIENT
  Age: 20 Year
  Sex: Female
  Weight: 61.22 kg

DRUGS (3)
  1. NEXPLANON [Suspect]
     Active Substance: ETONOGESTREL
     Indication: CONTRACEPTION
     Dosage: UNK
     Route: 059
     Dates: end: 20160722
  2. NEXPLANON [Suspect]
     Active Substance: ETONOGESTREL
     Dosage: ONE ROD (68 MG), PER 3 YEARS
     Route: 059
     Dates: start: 20160722, end: 20160722
  3. NEXPLANON [Suspect]
     Active Substance: ETONOGESTREL
     Dosage: ONE ROD (68 MG), PER 3 YEARS
     Route: 059
     Dates: start: 20160722

REACTIONS (2)
  - Complication of device insertion [Recovered/Resolved]
  - Product quality issue [Unknown]

NARRATIVE: CASE EVENT DATE: 20160722
